FAERS Safety Report 5808841-0 (Version None)
Quarter: 2008Q3

REPORT INFORMATION
  Report Type: 
  Country: None (occurrence: None)
  Receive Date: 20080714
  Receipt Date: 20080701
  Transmission Date: 20090109
  Serious: Yes (Hospitalization, Other)
  Sender: FDA-Public Use
  Company Number: US-ELI_LILLY_AND_COMPANY-US200805001767

PATIENT
  Age: 36 Year
  Sex: Female

DRUGS (4)
  1. CYMBALTA [Suspect]
     Dosage: 30 MG, QOD
     Dates: start: 20080129
  2. NOVOLOG [Concomitant]
     Route: 050
  3. LISINOPRIL [Concomitant]
  4. PREVACID [Concomitant]

REACTIONS (1)
  - HEPATITIS [None]
